FAERS Safety Report 10907572 (Version 1)
Quarter: 2015Q1

REPORT INFORMATION
  Report Type: Spontaneous
  Country: US (occurrence: US)
  Receive Date: 20150312
  Receipt Date: 20150312
  Transmission Date: 20150721
  Serious: No
  Sender: FDA-Public Use
  Company Number: US-PFIZER INC-2015086295

PATIENT
  Age: 55 Year
  Sex: Male

DRUGS (2)
  1. LYRICA [Suspect]
     Active Substance: PREGABALIN
     Indication: PAIN IN EXTREMITY
     Dosage: 50 MG, DAILY
  2. LYRICA [Suspect]
     Active Substance: PREGABALIN
     Indication: NERVOUS SYSTEM DISORDER
     Dosage: 150 MG, 2X/DAY (300 MG DAILY: 150MG IN THE MORNING AND 150MG IN THE EVENING)

REACTIONS (5)
  - Anxiety [Unknown]
  - Tremor [Unknown]
  - Sexual dysfunction [Unknown]
  - Visual acuity reduced [Unknown]
  - Pain [Unknown]
